FAERS Safety Report 14662783 (Version 2)
Quarter: 2018Q2

REPORT INFORMATION
  Report Type: Report from Study
  Country: FR (occurrence: FR)
  Receive Date: 20180321
  Receipt Date: 20180417
  Transmission Date: 20180711
  Serious: Yes (Other)
  Sender: FDA-Public Use
  Company Number: FR-AMGEN-FRACT2018036460

PATIENT
  Age: 74 Year
  Sex: Male
  Weight: 75 kg

DRUGS (14)
  1. IDEOS [Concomitant]
     Active Substance: CALCIUM CARBONATE\CHOLECALCIFEROL
     Dosage: 2 UNK, UNK
     Route: 048
     Dates: start: 20140819
  2. SIMVASTATINE [Concomitant]
     Active Substance: SIMVASTATIN
     Dosage: 1 UNK, UNK
     Route: 048
     Dates: start: 1999
  3. REVLIMID [Concomitant]
     Active Substance: LENALIDOMIDE
     Dosage: UNK
     Dates: start: 20170209
  4. KENZEN [Concomitant]
     Active Substance: CANDESARTAN
     Dosage: 8 MG, UNK
     Route: 048
     Dates: start: 2009
  5. KESTINLYO [Concomitant]
     Active Substance: EBASTINE
     Dosage: 1 UNK, UNK
     Route: 048
     Dates: start: 20170916
  6. XARELTO [Concomitant]
     Active Substance: RIVAROXABAN
     Dosage: 20 MG, UNK
     Route: 048
     Dates: start: 20170824
  7. NEOFORDEX [Concomitant]
     Active Substance: DEXAMETHASONE ACETATE
     Dosage: UNK
     Dates: start: 20170209
  8. DENOSUMAB [Suspect]
     Active Substance: DENOSUMAB
     Indication: PLASMA CELL MYELOMA
     Dosage: 1.7 ML, UNK
     Route: 065
     Dates: start: 20170209, end: 20180213
  9. PARACETAMOL [Concomitant]
     Active Substance: ACETAMINOPHEN
     Dosage: 1 G, UNK
     Route: 048
     Dates: start: 20150706
  10. ZOLEDRONIC ACID [Suspect]
     Active Substance: ZOLEDRONIC ACID
     Indication: PLASMA CELL MYELOMA
     Dosage: 4 MG, UNK
     Route: 065
     Dates: start: 20140731, end: 20161214
  11. NEBIVOLOL. [Concomitant]
     Active Substance: NEBIVOLOL
     Dosage: 2.5 MG, UNK
     Route: 048
     Dates: start: 20141213
  12. KARDEGIC [Concomitant]
     Active Substance: ASPIRIN DL-LYSINE
     Dosage: 75 MG, UNK
     Route: 048
     Dates: start: 2010
  13. MACROGOL [Concomitant]
     Active Substance: POLYETHYLENE GLYCOLS
     Dosage: 1 UNK, UNK
     Route: 048
     Dates: start: 20140717
  14. FLECAINIDE [Concomitant]
     Active Substance: FLECAINIDE
     Dosage: 200 MG, UNK
     Route: 048
     Dates: start: 20141213

REACTIONS (1)
  - Osteonecrosis of jaw [Not Recovered/Not Resolved]

NARRATIVE: CASE EVENT DATE: 20180315
